FAERS Safety Report 6098314-5 (Version None)
Quarter: 2009Q1

REPORT INFORMATION
  Report Type: 
  Country: None (occurrence: None)
  Receive Date: 20090302
  Receipt Date: 20090216
  Transmission Date: 20090719
  Serious: Yes (Other)
  Sender: FDA-Public Use
  Company Number: JP-PFIZER INC-2009166407

PATIENT

DRUGS (4)
  1. UNASYN [Interacting]
     Indication: INFECTION
     Dosage: UNK
     Route: 042
  2. DALACIN [Interacting]
     Indication: INFECTION
     Dosage: UNK
     Route: 042
  3. WARFARIN POTASSIUM [Interacting]
     Route: 048
  4. VOLTAREN [Suspect]

REACTIONS (2)
  - COAGULATION TIME PROLONGED [None]
  - DRUG INTERACTION [None]
